FAERS Safety Report 9304506 (Version 2)
Quarter: 2013Q2

REPORT INFORMATION
  Report Type: Spontaneous
  Country: US (occurrence: US)
  Receive Date: 20130523
  Receipt Date: 20130619
  Transmission Date: 20140414
  Serious: Yes (Death, Hospitalization, Other)
  Sender: FDA-Public Use
  Company Number: US-AMGEN-USASP2013036273

PATIENT
  Age: 83 Year
  Sex: Female

DRUGS (4)
  1. PROCRIT [Suspect]
     Indication: PRODUCT USED FOR UNKNOWN INDICATION
     Dosage: 20000 UNIT, QWK
     Route: 065
     Dates: start: 2011
  2. COUMADIN                           /00014802/ [Concomitant]
     Indication: THROMBOSIS
     Dosage: UNK
  3. LASIX                              /00032601/ [Concomitant]
     Dosage: UNK
  4. VITAMINS /90003601/ [Concomitant]
     Dosage: UNK UNK, QD

REACTIONS (6)
  - Cerebrovascular accident [Fatal]
  - Gastrointestinal haemorrhage [Unknown]
  - Hemiplegia [Unknown]
  - Speech disorder [Unknown]
  - Dysphagia [Unknown]
  - Condition aggravated [Unknown]
